FAERS Safety Report 4851836-4 (Version None)
Quarter: 2005Q4

REPORT INFORMATION
  Report Type: 
  Country: None (occurrence: None)
  Receive Date: 20051213
  Receipt Date: 20051130
  Transmission Date: 20060501
  Serious: Yes (Hospitalization)
  Sender: FDA-Public Use
  Company Number: NL-AMGEN-UK159927

PATIENT
  Sex: Male

DRUGS (4)
  1. NEULASTA [Suspect]
     Indication: CHEMOTHERAPY
     Route: 058
     Dates: start: 20050716, end: 20051008
  2. ENDOXAN [Concomitant]
     Route: 042
     Dates: start: 20050715, end: 20051007
  3. ONCOVIN [Concomitant]
     Route: 042
     Dates: start: 20050715, end: 20051007
  4. DOXORUBICIN HCL [Concomitant]
     Route: 042
     Dates: start: 20050715, end: 20051007

REACTIONS (2)
  - INTERSTITIAL LUNG DISEASE [None]
  - PYREXIA [None]
